FAERS Safety Report 23875300 (Version 2)
Quarter: 2024Q2

REPORT INFORMATION
  Report Type: Spontaneous
  Country: KE (occurrence: KE)
  Receive Date: 20240520
  Receipt Date: 20240521
  Transmission Date: 20240715
  Serious: Yes (Death, Hospitalization)
  Sender: FDA-Public Use
  Company Number: KE-PFIZER INC-PV202400065456

PATIENT
  Age: 73 Year
  Sex: Male

DRUGS (1)
  1. BOSUTINIB [Suspect]
     Active Substance: BOSUTINIB
     Indication: Chronic myeloid leukaemia
     Dosage: 400 MG (4 TABLETS OF 100 MG)

REACTIONS (2)
  - Death [Fatal]
  - Cerebral thrombosis [Unknown]

NARRATIVE: CASE EVENT DATE: 20240517
